FAERS Safety Report 25094564 (Version 1)
Quarter: 2025Q1

REPORT INFORMATION
  Report Type: Spontaneous
  Country: JP (occurrence: JP)
  Receive Date: 20250319
  Receipt Date: 20250319
  Transmission Date: 20250408
  Serious: Yes (Death)
  Sender: INSMED
  Company Number: JP-INSMED, INC.-2025-00892-JP

PATIENT
  Age: 57 Year
  Sex: Female

DRUGS (15)
  1. ARIKAYCE [Suspect]
     Active Substance: AMIKACIN
     Indication: Mycobacterium avium complex infection
     Dosage: 590 MILLIGRAM, QD
     Route: 055
     Dates: end: 202501
  2. CHLORPHENIRAMINE MALEATE\DIHYDROCODEINE PHOSPHATE\METHYLEPHEDRINE HYDR [Concomitant]
     Active Substance: CHLORPHENIRAMINE MALEATE\DIHYDROCODEINE PHOSPHATE\METHYLEPHEDRINE HYDROCHLORIDE, DL-
     Indication: Product used for unknown indication
     Dosage: 3 DOSAGE FORM, TID, AFTER EVERY MEAL, CONTINUED FOR ABOUT 2 TO 3 YEARS
     Route: 065
  3. AMBROXOL [Concomitant]
     Active Substance: AMBROXOL
     Indication: Product used for unknown indication
     Dosage: 15 MILLIGRAM, TID, AFTER EVERY MEAL, CONTINUED FOR ABOUT 2 TO 3 YEARS
     Route: 065
  4. URSODIOL [Concomitant]
     Active Substance: URSODIOL
     Indication: Product used for unknown indication
     Dosage: 100 MILLIGRAM, TID, AFTER EVERY MEAL, CONTINUED FOR ABOUT 2 TO 3 YEARS
     Route: 065
  5. MIYA-BM [Concomitant]
     Active Substance: CLOSTRIDIUM BUTYRICUM SPORES STRAIN M-55
     Indication: Product used for unknown indication
     Dosage: 2 DOSAGE FORM, TID, AFTER EVERY MEAL, CONTINUED FOR ABOUT 2 TO 3 YEARS
     Route: 065
  6. MONTELUKAST [Concomitant]
     Active Substance: MONTELUKAST
     Indication: Product used for unknown indication
     Dosage: 1 DOSAGE FORM, QD, BEFORE SLEEP, CONTINUED FOR ABOUT 2 TO 3 YEARS
     Route: 065
  7. VONOPRAZAN FUMARATE [Concomitant]
     Active Substance: VONOPRAZAN FUMARATE
     Indication: Product used for unknown indication
     Dosage: 1 DOSAGE FORM, QD, AFTER BREAKFAST, CONTINUED FOR ABOUT 2 TO 3 YEARS
     Route: 065
  8. PREDNISOLONE [Concomitant]
     Active Substance: PREDNISOLONE
     Indication: Product used for unknown indication
     Dosage: 5 MILLIGRAM, QD, AFTER BREAKFAST, CONTINUED FOR ABOUT 2 TO 3 YEARS
     Route: 065
  9. CELECOXIB [Concomitant]
     Active Substance: CELECOXIB
     Indication: Product used for unknown indication
     Dosage: 100 MILLIGRAM, BID, AFTER BREAKFAST/DINNER, CONTINUED FOR ABOUT 2 TO 3 YEARS
     Route: 065
  10. ATARAX-P [HYDROXYZINE HYDROCHLORIDE] [Concomitant]
     Indication: Product used for unknown indication
     Dosage: 25 MILLIGRAM, BID, AFTER BREAKFAST/DINNER, CONTINUED FOR ABOUT 2 TO 3 YEARS
     Route: 065
  11. AZITHROMYCIN [Concomitant]
     Active Substance: AZITHROMYCIN
     Indication: Product used for unknown indication
     Dosage: 2 DOSAGE FORM, QD, AFTER BREAKFAST (REPEAT THE CYCLE OF DOSING FOR 3 DAYS, THEN TAKING A BREAK FOR 1
     Route: 065
  12. LEVOFLOXACIN [Concomitant]
     Active Substance: LEVOFLOXACIN
     Indication: Product used for unknown indication
     Dosage: 500 MILLIGRAM, QD, AFTER BREAKFAST, CONTINUED FOR ABOUT 2 TO 3 YEARS
     Route: 065
  13. DAYVIGO [Concomitant]
     Active Substance: LEMBOREXANT
     Indication: Product used for unknown indication
     Dosage: 5 MILLIGRAM, QD, BEFORE SLEEP, CONTINUED FOR ABOUT 2 TO 3 YEARS
     Route: 065
  14. CODEINE PHOSPHATE [Concomitant]
     Active Substance: CODEINE PHOSPHATE
     Indication: Product used for unknown indication
     Dosage: 20 MILLIGRAM, TID, AFTER EVERY MEAL, CONTINUED FOR ABOUT 2 TO 3 YEARS
     Route: 065
  15. CALONAL [Concomitant]
     Active Substance: ACETAMINOPHEN
     Indication: Product used for unknown indication
     Route: 065

REACTIONS (2)
  - Death [Fatal]
  - Hepatic function abnormal [Unknown]

NARRATIVE: CASE EVENT DATE: 20250101
